FAERS Safety Report 8395949-1 (Version None)
Quarter: 2012Q2

REPORT INFORMATION
  Report Type: 
  Country: None (occurrence: None)
  Receive Date: 20120529
  Receipt Date: 20120529
  Transmission Date: 20120825
  Serious: Yes (Disabling, Other)
  Sender: FDA-Public Use
  Company Number: None

PATIENT
  Age: 39 Year
  Sex: Female
  Weight: 90.7194 kg

DRUGS (2)
  1. LEVAQUIN [Suspect]
     Indication: CHEST X-RAY ABNORMAL
     Dosage: 1 PILL X 1 DAILY  10 PILLS ORAL
     Route: 048
     Dates: start: 20120312, end: 20120322
  2. LEVAQUIN [Suspect]
     Indication: LUNG INFILTRATION
     Dosage: 1 PILL X 1 DAILY  10 PILLS ORAL
     Route: 048
     Dates: start: 20120312, end: 20120322

REACTIONS (6)
  - PAIN [None]
  - TENDONITIS [None]
  - SWELLING [None]
  - IMPAIRED WORK ABILITY [None]
  - MYALGIA [None]
  - FEELING ABNORMAL [None]
